FAERS Safety Report 16467765 (Version 1)
Quarter: 2019Q2

REPORT INFORMATION
  Report Type: Spontaneous
  Country: JP (occurrence: JP)
  Receive Date: 20190624
  Receipt Date: 20190624
  Transmission Date: 20190711
  Serious: Yes (Other)
  Sender: FDA-Public Use
  Company Number: JP-LUPIN PHARMACEUTICALS INC.-2019-02527

PATIENT
  Age: 64 Year
  Sex: Male

DRUGS (10)
  1. CYCLOSPORINE. [Concomitant]
     Active Substance: CYCLOSPORINE
     Dosage: 50-100 NANOGRAM PER MILLLIITER FROM THE THIRD MONTH TO ONE YEAR AFTER TRANSPLANT
     Route: 065
  2. MYCOPHENOLATE MOFETIL. [Concomitant]
     Active Substance: MYCOPHENOLATE MOFETIL
     Indication: IMMUNOSUPPRESSION
     Dosage: 1500 MILLIGRAM, QD
     Route: 065
  3. IMATINIB MESYLATE. [Suspect]
     Active Substance: IMATINIB MESYLATE
     Dosage: 300 MILLIGRAM, QD
     Route: 065
  4. BASILIXIMAB [Concomitant]
     Active Substance: BASILIXIMAB
     Indication: IMMUNOSUPPRESSANT DRUG THERAPY
     Dosage: UNK
     Route: 065
  5. CYCLOSPORINE. [Concomitant]
     Active Substance: CYCLOSPORINE
     Indication: IMMUNOSUPPRESSION
     Dosage: 150-200 NANOGRAM PER MILLLIITER FOR THE FIRST MONTH AFTER TRANSPLANT
     Route: 065
  6. METHYLPREDNISOLONE. [Concomitant]
     Active Substance: METHYLPREDNISOLONE
     Dosage: 4 MILLIGRAM, QD, THEREAFTER
  7. IMATINIB MESYLATE. [Suspect]
     Active Substance: IMATINIB MESYLATE
     Indication: TUMOUR NECROSIS
     Dosage: 400 MILLIGRAM, QD
     Route: 065
  8. METHYLPREDNISOLONE. [Concomitant]
     Active Substance: METHYLPREDNISOLONE
     Indication: IMMUNOSUPPRESSION
     Dosage: 20 MILLIGRAM, QD, WITH A SUBSEQUENT WEEKLY REDUCTION BY 4 MG
     Route: 065
  9. CYCLOSPORINE. [Concomitant]
     Active Substance: CYCLOSPORINE
     Dosage: 30-50 NANOGRAM PER MILLLIITER THEREAFTER
     Route: 065
  10. CYCLOSPORINE. [Concomitant]
     Active Substance: CYCLOSPORINE
     Dosage: 100-150 NANOGRAM PER MILLLIITER FOR THE SECOND MONTH
     Route: 065

REACTIONS (1)
  - Hyponatraemia [Recovered/Resolved]
